FAERS Safety Report 7967283-2 (Version None)
Quarter: 2011Q4

REPORT INFORMATION
  Report Type: 
  Country: None (occurrence: None)
  Receive Date: 20111208
  Receipt Date: 20111208
  Transmission Date: 20120403
  Serious: Yes (Other)
  Sender: FDA-Public Use
  Company Number: None

PATIENT
  Age: 66 Year
  Sex: Female

DRUGS (10)
  1. FUROSEMIDE [Concomitant]
  2. REVLIMID [Suspect]
     Indication: MULTIPLE MYELOMA
     Dosage: 10 MG DAILY ORALLY
     Route: 048
     Dates: start: 20110601
  3. REVLIMID [Suspect]
     Indication: MULTIPLE MYELOMA
     Dosage: 10 MG DAILY ORALLY
     Route: 048
     Dates: start: 20100901, end: 20101101
  4. POTASSIUM CHLORIDE [Concomitant]
  5. WARFARIN SODIUM [Concomitant]
  6. MORPHINE [Concomitant]
  7. AMLODIPINE [Concomitant]
  8. HYDRALAZINE HCL [Concomitant]
  9. NORTRIPTYLINE HCL [Concomitant]
  10. CLONIDINE [Concomitant]

REACTIONS (1)
  - PROTEIN TOTAL INCREASED [None]
